FAERS Safety Report 6850013-5 (Version None)
Quarter: 2010Q3

REPORT INFORMATION
  Report Type: 
  Country: None (occurrence: None)
  Receive Date: 20100716
  Receipt Date: 20071224
  Transmission Date: 20110219
  Serious: No
  Sender: FDA-Public Use
  Company Number: US-PFIZER INC-2007085356

PATIENT
  Sex: Female
  Weight: 83.5 kg

DRUGS (4)
  1. CHANTIX [Suspect]
     Indication: SMOKING CESSATION THERAPY
     Route: 048
     Dates: start: 20071004
  2. ADVICOR [Concomitant]
     Route: 048
  3. TARKA [Concomitant]
     Route: 048
  4. AZITHROMYCIN [Concomitant]
     Route: 048

REACTIONS (3)
  - HOT FLUSH [None]
  - NERVOUSNESS [None]
  - SKIN REACTION [None]
